FAERS Safety Report 19475616 (Version 1)
Quarter: 2021Q2

REPORT INFORMATION
  Report Type: Spontaneous
  Country: GB (occurrence: GB)
  Receive Date: 20210630
  Receipt Date: 20210630
  Transmission Date: 20210717
  Serious: Yes (Other)
  Sender: FDA-Public Use
  Company Number: GB-SUN PHARMACEUTICAL INDUSTRIES LTD-2021R1-301617

PATIENT
  Age: 27 Year
  Sex: Female

DRUGS (1)
  1. CARBOPLATIN. [Suspect]
     Active Substance: CARBOPLATIN
     Indication: NEOADJUVANT THERAPY
     Dosage: UNK/ 3 CYCLES
     Route: 065

REACTIONS (3)
  - Premature delivery [Unknown]
  - Disease progression [Unknown]
  - Exposure during pregnancy [Unknown]
